FAERS Safety Report 23302644 (Version 1)
Quarter: 2023Q4

REPORT INFORMATION
  Report Type: Spontaneous
  Country: IT (occurrence: IT)
  Receive Date: 20231215
  Receipt Date: 20231215
  Transmission Date: 20240109
  Serious: Yes (Other)
  Sender: FDA-Public Use
  Company Number: None

PATIENT
  Age: 68 Year
  Weight: 96 kg

DRUGS (2)
  1. CISPLATIN [Suspect]
     Active Substance: CISPLATIN
     Indication: Lung cancer metastatic
     Dosage: START OF THERAPY 28/12/2022 - 3RD CYCLE G8 - THERAPY EVERY 21 DAYS, G1 G8
     Route: 042
     Dates: start: 20230125, end: 20230125
  2. GEMCITABINE [Suspect]
     Active Substance: GEMCITABINE
     Indication: Lung cancer metastatic
     Dosage: START OF THERAPY 28/12/2022 - 3RD CYCLE G8 - THERAPY EVERY 21 DAYS, G1 G8
     Route: 042
     Dates: start: 20230125

REACTIONS (2)
  - Thrombocytopenia [Not Recovered/Not Resolved]
  - Anaemia [Not Recovered/Not Resolved]

NARRATIVE: CASE EVENT DATE: 20230203
